FAERS Safety Report 15625500 (Version 1)
Quarter: 2018Q4

REPORT INFORMATION
  Report Type: Report from Study
  Country: DE (occurrence: DE)
  Receive Date: 20181116
  Receipt Date: 20181116
  Transmission Date: 20190205
  Serious: Yes (Death, Other)
  Sender: FDA-Public Use
  Company Number: DE-ASTELLAS-2018US048564

PATIENT
  Age: 17 Year
  Sex: Female
  Weight: 54 kg

DRUGS (45)
  1. OCTAGAM IMMUNE GLOBULIN (HUMAN) [Suspect]
     Active Substance: HUMAN IMMUNOGLOBULIN G
     Indication: IMMUNOGLOBULINS ABNORMAL
     Dosage: UNK, UNKNOWN FREQ.
     Route: 042
     Dates: start: 19960703, end: 19960703
  2. VANCOMYCIN [Suspect]
     Active Substance: VANCOMYCIN
     Indication: ANTIBIOTIC THERAPY
     Dosage: UNK, UNKNOWN FREQ.
     Route: 042
     Dates: start: 19960706, end: 19960709
  3. REKAWAN [Suspect]
     Active Substance: POTASSIUM CHLORIDE
     Indication: HYPOKALAEMIA
     Dosage: UNK, UNKNOWN FREQ.
     Route: 048
     Dates: start: 19960622, end: 19960624
  4. DOXYCYCLIN                         /00055701/ [Concomitant]
     Active Substance: DOXYCYCLINE
     Indication: PRODUCT USED FOR UNKNOWN INDICATION
     Dosage: UNK UNK, UNKNOWN FREQ.
     Route: 065
     Dates: start: 19960707, end: 19960707
  5. BIOTIN [Concomitant]
     Active Substance: BIOTIN
     Indication: PRODUCT USED FOR UNKNOWN INDICATION
     Dosage: UNK UNK, UNKNOWN FREQ.
     Route: 065
  6. CLONT                              /00012501/ [Concomitant]
     Active Substance: METRONIDAZOLE
     Indication: PRODUCT USED FOR UNKNOWN INDICATION
     Dosage: UNK UNK, UNKNOWN FREQ.
     Route: 065
     Dates: start: 19960706, end: 19960709
  7. GERNEBCIN [Suspect]
     Active Substance: TOBRAMYCIN SULFATE
     Indication: IMMUNODEFICIENCY
     Dosage: UNK, UNKNOWN FREQ.
     Route: 042
     Dates: start: 19960701, end: 19960704
  8. NEUPOGEN [Suspect]
     Active Substance: FILGRASTIM
     Indication: NEUTROPENIA
     Dosage: UNK, UNKNOWN FREQ.
     Route: 058
     Dates: start: 19960701, end: 19960702
  9. ORGAMETRIL [Concomitant]
     Active Substance: LYNESTRENOL
     Indication: PRODUCT USED FOR UNKNOWN INDICATION
     Dosage: UNK UNK, UNKNOWN FREQ.
     Route: 065
     Dates: end: 19960616
  10. ASCORBIC ACID. [Concomitant]
     Active Substance: ASCORBIC ACID
     Indication: PRODUCT USED FOR UNKNOWN INDICATION
     Dosage: UNK UNK, UNKNOWN FREQ.
     Route: 065
  11. CYMEVEN                            /00784201/ [Suspect]
     Active Substance: GANCICLOVIR
     Indication: IMMUNODEFICIENCY
     Dosage: UNK, UNKNOWN FREQ.
     Route: 042
     Dates: start: 19960621, end: 19960709
  12. COTRIM [Suspect]
     Active Substance: SULFAMETHOXAZOLE\TRIMETHOPRIM
     Indication: ANTIBIOTIC THERAPY
     Route: 048
     Dates: start: 19960615, end: 19960616
  13. ANTRA                              /00661201/ [Suspect]
     Active Substance: OMEPRAZOLE
     Indication: SKIN ULCER
     Dosage: UNK, UNKNOWN FREQ.
     Route: 042
     Dates: start: 19960702, end: 19960709
  14. BEN-U-RON [Suspect]
     Active Substance: ACETAMINOPHEN
     Indication: PAIN
     Route: 048
     Dates: start: 19960701, end: 19960701
  15. DOLANTIN [Suspect]
     Active Substance: MEPERIDINE
     Indication: PAIN
     Dosage: UNK, UNKNOWN FREQ.
     Route: 042
     Dates: start: 19960620, end: 19960622
  16. CALCIUM [Concomitant]
     Active Substance: CALCIUM
     Indication: PRODUCT USED FOR UNKNOWN INDICATION
     Dosage: UNK UNK, UNKNOWN FREQ.
     Route: 065
     Dates: end: 19960616
  17. MULTIVITAMIN AND MINERAL [Concomitant]
     Indication: PRODUCT USED FOR UNKNOWN INDICATION
     Dosage: UNK UNK, UNKNOWN FREQ.
     Route: 065
  18. SOLU DECORTIN H [Suspect]
     Active Substance: PREDNISOLONE SODIUM SUCCINATE
     Indication: IMMUNOSUPPRESSION
     Route: 042
     Dates: start: 19960622, end: 19960626
  19. PIPRIL [Suspect]
     Active Substance: PIPERACILLIN SODIUM
     Indication: IMMUNODEFICIENCY
     Dosage: UNK, UNKNOWN FREQ.
     Route: 042
     Dates: start: 19960702, end: 19960705
  20. CIPROBAY                           /00697201/ [Suspect]
     Active Substance: CIPROFLOXACIN
     Indication: IMMUNODEFICIENCY
     Dosage: UNK, UNKNOWN FREQ.
     Route: 042
     Dates: start: 19960627, end: 19960701
  21. LACTULOSE. [Suspect]
     Active Substance: LACTULOSE
     Indication: CONSTIPATION
     Route: 048
     Dates: start: 19960619, end: 19960620
  22. DIFLUCAN [Suspect]
     Active Substance: FLUCONAZOLE
     Indication: ANTIFUNGAL PROPHYLAXIS
     Dosage: UNK, UNKNOWN FREQ.
     Route: 048
     Dates: end: 19960619
  23. ATOSIL                             /00033002/ [Suspect]
     Active Substance: PROMETHAZINE HYDROCHLORIDE
     Indication: RESTLESSNESS
     Dosage: UNK, UNKNOWN FREQ.
     Route: 042
     Dates: start: 19960701, end: 19960701
  24. DECORTIN [Concomitant]
     Active Substance: PREDNISONE
     Indication: PRODUCT USED FOR UNKNOWN INDICATION
     Dosage: UNK UNK, UNKNOWN FREQ.
     Route: 065
     Dates: end: 19960829
  25. RUTOSIDE [Concomitant]
     Indication: PRODUCT USED FOR UNKNOWN INDICATION
     Dosage: UNK UNK, UNKNOWN FREQ.
     Route: 065
  26. AMPHOTERICIN B, LIPOSOME [Suspect]
     Active Substance: AMPHOTERICIN B
     Indication: FUNGAL INFECTION
     Dosage: UNK, UNKNOWN FREQ.
     Route: 042
     Dates: start: 19960620, end: 19960709
  27. PASPERTIN                          /00041902/ [Suspect]
     Active Substance: METOCLOPRAMIDE HYDROCHLORIDE
     Indication: NAUSEA
     Route: 048
     Dates: start: 19960622, end: 19960625
  28. LIQUEMIN                           /00027701/ [Suspect]
     Active Substance: HEPARIN SODIUM
     Indication: THROMBOSIS PROPHYLAXIS
     Dosage: UNK, UNKNOWN FREQ.
     Route: 042
     Dates: start: 19960702, end: 19960709
  29. MIDAZOLAM [Suspect]
     Active Substance: MIDAZOLAM HYDROCHLORIDE
     Indication: SEDATION
     Dosage: UNK UNK, UNKNOWN FREQ.
     Route: 042
     Dates: start: 19960626, end: 19960626
  30. DIAZEPAM. [Suspect]
     Active Substance: DIAZEPAM
     Indication: SEDATION
     Dosage: UNK, UNKNOWN FREQ.
     Route: 065
     Dates: start: 19960701, end: 19960702
  31. ZOVIRAX [Concomitant]
     Active Substance: ACYCLOVIR
     Indication: PRODUCT USED FOR UNKNOWN INDICATION
     Dosage: UNK UNK, UNKNOWN FREQ.
     Route: 065
     Dates: end: 19960623
  32. CYANOCOBALAMIN. [Concomitant]
     Active Substance: CYANOCOBALAMIN
     Indication: PRODUCT USED FOR UNKNOWN INDICATION
     Dosage: UNK UNK, UNKNOWN FREQ.
     Route: 065
  33. MERONEM [Suspect]
     Active Substance: MEROPENEM
     Indication: IMMUNODEFICIENCY
     Dosage: UNK, UNKNOWN FREQ.
     Route: 042
     Dates: start: 19960621, end: 19960626
  34. TAVEGIL                            /00137201/ [Suspect]
     Active Substance: CLEMASTINE FUMARATE
     Indication: PRURITUS
     Dosage: UNK, UNKNOWN FREQ.
     Route: 042
     Dates: start: 19960622, end: 19960625
  35. NOVALGIN (METAMIZOLE SODIUM) [Suspect]
     Active Substance: METAMIZOLE SODIUM
     Indication: ANALGESIC THERAPY
     Dosage: UNK, UNKNOWN FREQ.
     Route: 042
     Dates: start: 19960704, end: 19960709
  36. NEUROCIL /00038603/ [Suspect]
     Active Substance: LEVOMEPROMAZINE HYDROCHLORIDE
     Indication: ANXIETY
     Dosage: UNK UNK, UNKNOWN FREQ.
     Route: 042
     Dates: start: 19960707, end: 19960707
  37. LASIX [Suspect]
     Active Substance: FUROSEMIDE
     Indication: OEDEMA
     Dosage: UNK, UNKNOWN FREQ.
     Route: 042
     Dates: start: 19960704, end: 19960704
  38. ZIENAM [Suspect]
     Active Substance: CILASTATIN SODIUM\IMIPENEM
     Indication: IMMUNODEFICIENCY
     Dosage: UNK, UNKNOWN FREQ.
     Route: 042
     Dates: start: 19960620, end: 19960621
  39. FORTUM                             /00559701/ [Suspect]
     Active Substance: CEFTAZIDIME
     Indication: IMMUNODEFICIENCY
     Dosage: UNK UNK, UNKNOWN FREQ.
     Route: 042
     Dates: start: 19960617, end: 19960620
  40. TARGOCID [Suspect]
     Active Substance: TEICOPLANIN
     Indication: IMMUNODEFICIENCY
     Dosage: UNK UNK, UNKNOWN FREQ.
     Route: 042
     Dates: start: 19960701, end: 19960709
  41. ZANTAC [Suspect]
     Active Substance: RANITIDINE HYDROCHLORIDE
     Indication: ULCER
     Dosage: UNK, UNKNOWN FREQ.
     Route: 042
     Dates: start: 19960627, end: 19960701
  42. FOLSAN [Concomitant]
     Active Substance: FOLIC ACID
     Indication: PRODUCT USED FOR UNKNOWN INDICATION
     Dosage: UNK UNK, UNKNOWN FREQ.
     Route: 065
     Dates: end: 19960829
  43. CALCIUM PANTOTHENATE [Concomitant]
     Active Substance: CALCIUM PANTOTHENATE
     Indication: PRODUCT USED FOR UNKNOWN INDICATION
     Dosage: UNK UNK, UNKNOWN FREQ.
     Route: 065
  44. NICOTINAMIDE [Concomitant]
     Active Substance: NIACINAMIDE
     Indication: PRODUCT USED FOR UNKNOWN INDICATION
     Dosage: UNK UNK, UNKNOWN FREQ.
     Route: 065
  45. TOCOPHERYL ACETATE [Concomitant]
     Active Substance: .ALPHA.-TOCOPHEROL ACETATE
     Indication: PRODUCT USED FOR UNKNOWN INDICATION
     Dosage: UNK UNK, UNKNOWN FREQ.
     Route: 065

REACTIONS (4)
  - Stevens-Johnson syndrome [Fatal]
  - Septic shock [Fatal]
  - Multiple organ dysfunction syndrome [Fatal]
  - Toxic epidermal necrolysis [Fatal]

NARRATIVE: CASE EVENT DATE: 19960704
